FAERS Safety Report 8791432 (Version 4)
Quarter: 2014Q2

REPORT INFORMATION
  Report Type: Spontaneous
  Country: US (occurrence: None)
  Receive Date: 20120912
  Receipt Date: 20140609
  Transmission Date: 20141212
  Serious: Yes (Hospitalization, Other)
  Sender: FDA-Public Use
  Company Number: JPI-P-024345

PATIENT
  Age: 49 Year
  Sex: Female

DRUGS (11)
  1. XYREM [Suspect]
     Indication: CATAPLEXY
     Route: 048
     Dates: start: 20120725, end: 20120813
  2. MELOXICAM [Suspect]
     Indication: PRODUCT USED FOR UNKNOWN INDICATION
  3. CLONAZEPAM [Suspect]
     Indication: PRODUCT USED FOR UNKNOWN INDICATION
  4. METHYLPHENIDATE HCI [Suspect]
     Indication: PRODUCT USED FOR UNKNOWN INDICATION
  5. BACLOFEN (BACLOFEN) [Suspect]
     Indication: PRODUCT USED FOR UNKNOWN INDICATION
  6. GABAPENTIN (GABAPENTIN) [Suspect]
     Indication: PRODUCT USED FOR UNKNOWN INDICATION
  7. VITAMIN D3 (COLECALCIFEROL) [Suspect]
     Indication: PRODUCT USED FOR UNKNOWN INDICATION
  8. HYDROCODONE-ACETAMINOPHEN [Suspect]
     Indication: PRODUCT USED FOR UNKNOWN INDICATION
  9. DESVENLAFAXINE [Suspect]
     Indication: BIPOLAR DISORDER
     Dates: start: 201208
  10. SIMVASTATIN (SIMVASTATIN) [Suspect]
     Indication: PRODUCT USED FOR UNKNOWN INDICATION
  11. ARIPIPRAZOLE (ARIPIPRAZOLE) [Suspect]
     Indication: BIPOLAR DISORDER
     Route: 048
     Dates: start: 201208

REACTIONS (20)
  - Depression [None]
  - Panic attack [None]
  - Aerophagia [None]
  - Dysphagia [None]
  - Eructation [None]
  - Sleep disorder [None]
  - Tremor [None]
  - Hyperhidrosis [None]
  - Fatigue [None]
  - Stress [None]
  - Malaise [None]
  - Cholelithiasis [None]
  - Vitamin D decreased [None]
  - Drug ineffective [None]
  - Bile duct obstruction [None]
  - Bilirubinuria [None]
  - Suicidal ideation [None]
  - Insomnia [None]
  - Decreased appetite [None]
  - Lethargy [None]
